FAERS Safety Report 24678642 (Version 2)
Quarter: 2024Q4

REPORT INFORMATION
  Report Type: Spontaneous
  Country: FR (occurrence: FR)
  Receive Date: 20241129
  Receipt Date: 20241208
  Transmission Date: 20250114
  Serious: Yes (Other)
  Sender: JOHNSON AND JOHNSON
  Company Number: FR-AFSSAPS-AN2024001566

PATIENT
  Age: 60 Year
  Sex: Female

DRUGS (2)
  1. ZYTIGA [Suspect]
     Active Substance: ABIRATERONE ACETATE
     Indication: Breast cancer
     Route: 048
     Dates: start: 20241021, end: 20241031
  2. ZYTIGA [Suspect]
     Active Substance: ABIRATERONE ACETATE
     Route: 048
     Dates: start: 20241021, end: 20241031

REACTIONS (4)
  - Product dispensing error [Recovered/Resolved]
  - Hyperbilirubinaemia [Recovered/Resolved]
  - Hypertension [Recovering/Resolving]
  - Asthenia [Recovering/Resolving]

NARRATIVE: CASE EVENT DATE: 20241021
